FAERS Safety Report 7772147-3 (Version None)
Quarter: 2011Q3

REPORT INFORMATION
  Report Type: 
  Country: None (occurrence: None)
  Receive Date: 20110922
  Receipt Date: 20100831
  Transmission Date: 20111222
  Serious: Yes (Hospitalization)
  Sender: FDA-Public Use
  Company Number: US-ASTRAZENECA-2010SE41197

PATIENT
  Sex: Male

DRUGS (2)
  1. LITHIUM [Concomitant]
     Route: 048
     Dates: start: 20100101, end: 20100101
  2. SEROQUEL [Suspect]
     Route: 048
     Dates: start: 20100101

REACTIONS (2)
  - PYREXIA [None]
  - NEUROLEPTIC MALIGNANT SYNDROME [None]
